FAERS Safety Report 8251847-5 (Version None)
Quarter: 2012Q2

REPORT INFORMATION
  Report Type: 
  Country: None (occurrence: None)
  Receive Date: 20120402
  Receipt Date: 20120327
  Transmission Date: 20120825
  Serious: Yes (Hospitalization)
  Sender: FDA-Public Use
  Company Number: BR-ABBOTT-12P-020-0917935-00

PATIENT
  Sex: Female
  Weight: 54 kg

DRUGS (9)
  1. METHOTREXATE [Concomitant]
     Indication: MUSCULOSKELETAL PAIN
     Dosage: ONCE DAILY IN THE MORNING
     Route: 048
  2. OMEPRAZOLE [Concomitant]
     Indication: GASTRIC DISORDER
     Dosage: ONCE DAILY, FASTING
     Route: 048
  3. ULUFROLAMIDA [Concomitant]
     Indication: MUSCULOSKELETAL PAIN
     Dosage: ONCE DAILY IN THE MORNING
     Route: 048
     Dates: end: 20111101
  4. ATENOLOL [Concomitant]
     Indication: HYPERTENSION
     Dosage: ONE TABLET IN THE MORING AND ONE AT NIGHT
     Route: 048
  5. SPIRONOLACTONE [Concomitant]
     Indication: THYROID DISORDER
     Route: 048
     Dates: start: 20120323
  6. HUMIRA [Suspect]
     Indication: RHEUMATOID ARTHRITIS
     Route: 058
  7. DIURETIDE [Concomitant]
     Indication: DYSURIA
     Dosage: ONCE DAILY IN THE MORNING
     Route: 048
  8. METHYLDOPA [Concomitant]
     Indication: HYPERTENSION
     Route: 048
  9. OMEPRAZOLE [Concomitant]
     Indication: PROPHYLAXIS

REACTIONS (10)
  - CARDIOMEGALY [None]
  - PAIN IN EXTREMITY [None]
  - JOINT SWELLING [None]
  - MALAISE [None]
  - OEDEMA PERIPHERAL [None]
  - JOINT RANGE OF MOTION DECREASED [None]
  - DRUG INEFFECTIVE [None]
  - ARTHRALGIA [None]
  - JOINT LOCK [None]
  - PYREXIA [None]
